FAERS Safety Report 9770810 (Version 1)
Quarter: 2013Q4

REPORT INFORMATION
  Report Type: Spontaneous
  Country: US (occurrence: US)
  Receive Date: 20131218
  Receipt Date: 20131218
  Transmission Date: 20140711
  Serious: No
  Sender: FDA-Public Use
  Company Number: US-PFIZER INC-2013361488

PATIENT
  Age: 89 Year
  Sex: Male
  Weight: 86.17 kg

DRUGS (2)
  1. ACCUPRIL [Suspect]
     Indication: BLOOD PRESSURE INCREASED
     Dosage: 20 MG TWICE A DAY
     Route: 048
  2. GLUCOTROL XL [Concomitant]
     Indication: DIABETES MELLITUS
     Dosage: 5 MG, 2X/DAY
     Route: 048

REACTIONS (1)
  - Blood pressure increased [Unknown]
